FAERS Safety Report 8732562 (Version 2)
Quarter: 2015Q2

REPORT INFORMATION
  Report Type: Report from Study
  Country: US (occurrence: US)
  Receive Date: 20120820
  Receipt Date: 20150407
  Transmission Date: 20150821
  Serious: Yes (Death, Other)
  Sender: FDA-Public Use
  Company Number: US-ROCHE-1101294

PATIENT
  Age: 59 Year
  Sex: Female

DRUGS (17)
  1. ACTIVASE [Suspect]
     Active Substance: ALTEPLASE
     Indication: ACUTE MYOCARDIAL INFARCTION
     Route: 040
  2. LANOXIN [Concomitant]
     Active Substance: DIGOXIN
     Route: 042
  3. LASIX [Concomitant]
     Active Substance: FUROSEMIDE
     Route: 042
  4. TYLENOL [Concomitant]
     Active Substance: ACETAMINOPHEN
     Route: 048
  5. MAALOXAN [Concomitant]
     Active Substance: ALUMINUM HYDROXIDE\MAGNESIUM HYDROXIDE
  6. HUMULIN NOS [Concomitant]
     Active Substance: INSULIN HUMAN
     Route: 058
  7. ACTIVASE [Suspect]
     Active Substance: ALTEPLASE
     Route: 042
  8. ASPIRIN. [Concomitant]
     Active Substance: ASPIRIN
     Route: 048
  9. ACTIVASE [Suspect]
     Active Substance: ALTEPLASE
     Route: 041
  10. NITROGLYCERIN. [Concomitant]
     Active Substance: NITROGLYCERIN
     Route: 060
  11. LIDOCAINE. [Concomitant]
     Active Substance: LIDOCAINE
     Route: 040
  12. HUMULIN NOS [Concomitant]
     Active Substance: INSULIN HUMAN
     Route: 042
  13. DOBUTAMINE [Concomitant]
     Active Substance: DOBUTAMINE\DOBUTAMINE HYDROCHLORIDE
     Route: 065
  14. SANOREX [Concomitant]
     Active Substance: MAZINDOL
     Route: 042
  15. HEPARIN [Concomitant]
     Active Substance: HEPARIN SODIUM
  16. PHENERGAN [Concomitant]
     Active Substance: PROMETHAZINE HYDROCHLORIDE
     Route: 042
  17. MORPHINE SULPHATE DRIP [Concomitant]
     Route: 042

REACTIONS (15)
  - Extrasystoles [Unknown]
  - Oedema peripheral [Unknown]
  - Rhythm idioventricular [Unknown]
  - Blood pressure decreased [Unknown]
  - Skin discolouration [Unknown]
  - Death [Fatal]
  - Ventricular tachycardia [Unknown]
  - Nausea [Unknown]
  - Pain [Unknown]
  - Vomiting [Unknown]
  - Dry skin [Unknown]
  - Tongue disorder [Unknown]
  - Ventricular extrasystoles [Unknown]
  - Chest pain [Unknown]
  - Disorientation [Unknown]

NARRATIVE: CASE EVENT DATE: 19941227
